FAERS Safety Report 5403992-7 (Version None)
Quarter: 2007Q3

REPORT INFORMATION
  Report Type: 
  Country: None (occurrence: None)
  Receive Date: 20070802
  Receipt Date: 20070727
  Transmission Date: 20080115
  Serious: Yes (Hospitalization)
  Sender: FDA-Public Use
  Company Number: B0480878A

PATIENT
  Age: 94 Year
  Sex: Female

DRUGS (6)
  1. VALTREX [Suspect]
     Indication: HERPES ZOSTER
     Dosage: 1000MG THREE TIMES PER DAY
     Route: 048
     Dates: start: 20070704, end: 20070705
  2. TOWARAT L [Concomitant]
     Route: 048
  3. UNKNOWN [Concomitant]
     Route: 048
  4. TRYPTANOL [Concomitant]
     Route: 048
  5. CHINESE MEDICINE [Concomitant]
     Route: 048
  6. CHINESE MEDICINE [Concomitant]
     Route: 048

REACTIONS (3)
  - OEDEMA [None]
  - RENAL DISORDER [None]
  - URINE OUTPUT DECREASED [None]
